FAERS Safety Report 26166834 (Version 1)
Quarter: 2025Q4

REPORT INFORMATION
  Report Type: Report from Study
  Country: US (occurrence: US)
  Receive Date: 20251217
  Receipt Date: 20251217
  Transmission Date: 20260117
  Serious: No
  Sender: BIOVITRUM
  Company Number: US-BIOVITRUM-2025-US-017188

PATIENT
  Age: 65 Year
  Sex: Male

DRUGS (1)
  1. DOPTELET [Suspect]
     Active Substance: AVATROMBOPAG MALEATE
     Indication: Product used for unknown indication
     Dosage: 2 TABLETS 3 TIMES PER WEEK AND 1 TABLET ON THE OTHER 4 DAYS OF THE WEEK
     Route: 048

REACTIONS (1)
  - Drug ineffective [Unknown]
